FAERS Safety Report 8779262 (Version 2)
Quarter: 2012Q4

REPORT INFORMATION
  Report Type: 
  Country: DZ (occurrence: DZ)
  Receive Date: 20120912
  Receipt Date: 20120921
  Transmission Date: 20130627
  Serious: Yes (Hospitalization, Other)
  Sender: FDA-Public Use
  Company Number: DZ-ROCHE-1120798

PATIENT
  Age: 49 Year
  Sex: Female

DRUGS (5)
  1. HERCEPTIN [Suspect]
     Indication: BREAST CANCER
     Dosage: maintenance dose
     Route: 042
     Dates: start: 20120625
  2. HERCEPTIN [Suspect]
     Dosage: loading dose
     Route: 042
     Dates: start: 20120625
  3. TAXOTERE [Concomitant]
     Indication: BREAST CANCER
     Route: 042
     Dates: start: 20120625, end: 20120825
  4. CYCLOPHOSPHAMID [Concomitant]
     Indication: BREAST CANCER
     Route: 042
     Dates: start: 20120625, end: 20120825
  5. GLUCOPHAGE [Concomitant]

REACTIONS (4)
  - Cardiac failure [Not Recovered/Not Resolved]
  - Ejection fraction decreased [Not Recovered/Not Resolved]
  - Vasculitis [Recovering/Resolving]
  - Raynaud^s phenomenon [Recovering/Resolving]
